FAERS Safety Report 15611768 (Version 2)
Quarter: 2019Q2

REPORT INFORMATION
  Report Type: Spontaneous
  Country: ES (occurrence: ES)
  Receive Date: 20181113
  Receipt Date: 20190401
  Transmission Date: 20190711
  Serious: Yes (Hospitalization, Other)
  Sender: FDA-Public Use
  Company Number: ES-INCYTE CORPORATION-2018IN011382

PATIENT

DRUGS (5)
  1. JAKAVI [Suspect]
     Active Substance: RUXOLITINIB
     Dosage: 20 MG, Q12H
     Route: 065
     Dates: start: 201703, end: 201811
  2. JAKAVI [Suspect]
     Active Substance: RUXOLITINIB
     Dosage: 10 MG, Q12H
     Route: 048
     Dates: start: 201811, end: 20190212
  3. HYDREA [Concomitant]
     Active Substance: HYDROXYUREA
     Indication: PRODUCT USED FOR UNKNOWN INDICATION
     Dosage: UNK
     Route: 065
     Dates: start: 201806
  4. JAKAVI [Suspect]
     Active Substance: RUXOLITINIB
     Dosage: 10 MG, Q12H
     Route: 048
     Dates: start: 20190212
  5. JAKAVI [Suspect]
     Active Substance: RUXOLITINIB
     Indication: MYELOFIBROSIS
     Dosage: 5 MG, Q12H
     Route: 065
     Dates: start: 201609, end: 201703

REACTIONS (8)
  - Tracheal injury [Unknown]
  - Tracheal neoplasm [Unknown]
  - Rectal haemorrhage [Unknown]
  - Tracheal stenosis [Unknown]
  - Platelet count increased [Unknown]
  - Leishmaniasis [Unknown]
  - Anal cancer [Unknown]
  - Benign tracheal neoplasm [Unknown]

NARRATIVE: CASE EVENT DATE: 201901
